FAERS Safety Report 5063999-9 (Version None)
Quarter: 2006Q3

REPORT INFORMATION
  Report Type: 
  Country: None (occurrence: None)
  Receive Date: 20060703
  Receipt Date: 20060509
  Transmission Date: 20061208
  Serious: Yes (Other)
  Sender: FDA-Public Use
  Company Number: 145708USA

PATIENT
  Sex: Female

DRUGS (3)
  1. RIBAVIRIN [Suspect]
     Dates: start: 20060402, end: 20060427
  2. PEGASYS [Suspect]
     Dates: start: 20060402, end: 20060423
  3. PROZAC [Concomitant]

REACTIONS (2)
  - DEPRESSION [None]
  - NEUTROPENIA [None]
